FAERS Safety Report 13134852 (Version 1)
Quarter: 2017Q1

REPORT INFORMATION
  Report Type: Spontaneous
  Country: None (occurrence: US)
  Receive Date: 20170120
  Receipt Date: 20170120
  Transmission Date: 20170428
  Serious: No
  Sender: FDA-Public Use
  Company Number: US-RARE DISEASE THERAPEUTICS, INC.-1062222

PATIENT
  Age: 10 Month
  Sex: Male
  Weight: 5.95 kg

DRUGS (7)
  1. POLY-VI-SOL [Concomitant]
     Active Substance: VITAMINS
  2. LEUCOVORIN. [Concomitant]
     Active Substance: LEUCOVORIN
  3. CYSTADANE [Suspect]
     Active Substance: BETAINE
     Dates: start: 20160510
  4. LEVOCARNITINE. [Concomitant]
     Active Substance: LEVOCARNITINE
  5. VITAMIN B12 [Concomitant]
     Active Substance: CYANOCOBALAMIN
  6. ENFAMIL NATALINS RX [Concomitant]
  7. FERROUS SULFATE. [Concomitant]
     Active Substance: FERROUS SULFATE

REACTIONS (3)
  - Overdose [None]
  - Pyrexia [Not Recovered/Not Resolved]
  - Cough [Not Recovered/Not Resolved]

NARRATIVE: CASE EVENT DATE: 20170109
